FAERS Safety Report 19940524 (Version 2)
Quarter: 2021Q4

REPORT INFORMATION
  Report Type: Spontaneous
  Country: US (occurrence: US)
  Receive Date: 20211011
  Receipt Date: 20211225
  Transmission Date: 20220303
  Serious: Yes (Other)
  Sender: FDA-Public Use
  Company Number: US-TEVA-2021-US-1965264

PATIENT
  Age: 52 Year
  Sex: Male
  Weight: 92.9 kg

DRUGS (17)
  1. AMLODIPINE\HYDROCHLOROTHIAZIDE\VALSARTAN [Suspect]
     Active Substance: AMLODIPINE\HYDROCHLOROTHIAZIDE\VALSARTAN
     Indication: Hypertension
     Dosage: 1 DOSAGE FORMS DAILY; DOSE: 5-160-12.5 MG
     Route: 048
     Dates: start: 20151026, end: 20160127
  2. AMLODIPINE\VALSARTAN [Suspect]
     Active Substance: AMLODIPINE\VALSARTAN
     Indication: Hypertension
     Dosage: 1 DOSAGE FORMS DAILY; DOSE: 5-160 MG
     Route: 048
     Dates: start: 20160801, end: 20170507
  3. AMLODIPINE\VALSARTAN [Suspect]
     Active Substance: AMLODIPINE\VALSARTAN
     Dosage: 1 DOSAGE FORMS DAILY; DOSE: 5-160 MG
     Route: 048
     Dates: start: 20170728, end: 20180329
  4. VALSARTAN [Suspect]
     Active Substance: VALSARTAN
     Indication: Hypertension
     Dosage: 1 DOSAGE FORMS DAILY; DOSE: 160 MG
     Route: 048
     Dates: start: 20170511, end: 20170809
  5. AMLODIPINE\VALSARTAN [Suspect]
     Active Substance: AMLODIPINE\VALSARTAN
     Indication: Hypertension
     Dosage: 1 DOSAGE FORMS DAILY; DOSE: 5-160 MG
     Route: 048
     Dates: start: 20180328, end: 20191125
  6. COENZYME Q10 [Concomitant]
     Active Substance: DIETARY SUPPLEMENT\UBIDECARENONE
     Indication: Arthralgia
     Dosage: 100 MILLIGRAM DAILY;
     Route: 065
     Dates: start: 2016
  7. ASPIRIN [Concomitant]
     Active Substance: ASPIRIN
     Dosage: DOSE: 81 MG (ASPIRIN LOW DOSE EC)
     Route: 048
  8. Tenorim [Concomitant]
     Indication: Hypertension
     Dosage: 25 MILLIGRAM DAILY;
     Route: 048
     Dates: start: 2016
  9. LIPITOR [Concomitant]
     Active Substance: ATORVASTATIN CALCIUM
     Indication: Blood cholesterol increased
     Dosage: 40 MILLIGRAM DAILY;
     Route: 048
     Dates: start: 2017
  10. CINNAMON [Concomitant]
     Active Substance: CINNAMON
     Dosage: DOSE: 500 MG
     Route: 048
  11. GLUCOPHAGE [Concomitant]
     Active Substance: METFORMIN HYDROCHLORIDE
     Indication: Diabetes mellitus
     Dosage: 500 MILLIGRAM DAILY;
     Route: 048
     Dates: start: 2018
  12. FISH OIL [Concomitant]
     Active Substance: FISH OIL
     Indication: Blood disorder
     Dosage: 360 MILLIGRAM DAILY;
     Route: 048
     Dates: start: 2016
  13. FISH OIL [Concomitant]
     Active Substance: FISH OIL
     Indication: Cardiac disorder
  14. PRILOSEC [Concomitant]
     Active Substance: OMEPRAZOLE MAGNESIUM
     Indication: Gastrooesophageal reflux disease
     Dosage: 20 MILLIGRAM DAILY;
     Route: 048
     Dates: start: 1995
  15. PRILOSEC [Concomitant]
     Active Substance: OMEPRAZOLE MAGNESIUM
     Indication: Dyspepsia
  16. METOPROLOL [Concomitant]
     Active Substance: METOPROLOL
     Indication: Hypertension
     Dosage: 50 MILLIGRAM DAILY;
     Route: 065
     Dates: start: 2015, end: 2015
  17. ZYRTEC [Concomitant]
     Active Substance: CETIRIZINE HYDROCHLORIDE
     Indication: Hypersensitivity
     Dosage: 10 MILLIGRAM DAILY; DOSE: 10 MG DAILY AS NEEDED
     Route: 065
     Dates: start: 2015

REACTIONS (4)
  - Colorectal cancer stage II [Recovered/Resolved]
  - Irritable bowel syndrome [Not Recovered/Not Resolved]
  - Arthralgia [Not Recovered/Not Resolved]
  - Fatigue [Not Recovered/Not Resolved]

NARRATIVE: CASE EVENT DATE: 20191101
